FAERS Safety Report 19700497 (Version 2)
Quarter: 2021Q3

REPORT INFORMATION
  Report Type: Report from Study
  Country: US (occurrence: US)
  Receive Date: 20210814
  Receipt Date: 20210916
  Transmission Date: 20211014
  Serious: Yes (Other)
  Sender: FDA-Public Use
  Company Number: NVSC2021US178990

PATIENT
  Age: 44 Year
  Sex: Female

DRUGS (1)
  1. ENTRESTO [Suspect]
     Active Substance: SACUBITRIL\VALSARTAN
     Indication: CARDIAC FAILURE
     Dosage: 1 DF, BID,(24/26MG)
     Route: 048
     Dates: start: 202105

REACTIONS (2)
  - Cataract [Unknown]
  - Cough [Unknown]

NARRATIVE: CASE EVENT DATE: 20210910
